FAERS Safety Report 4559809-6 (Version None)
Quarter: 2005Q1

REPORT INFORMATION
  Report Type: 
  Country: None (occurrence: None)
  Receive Date: 20050107
  Receipt Date: 20041205
  Transmission Date: 20050727
  Serious: Yes (Other)
  Sender: FDA-Public Use
  Company Number: ENTC2004-0226

PATIENT
  Age: 62 Year
  Sex: Male

DRUGS (2)
  1. STALEVO 100 [Suspect]
     Indication: PARKINSON'S DISEASE
     Dosage: 100 MG/25 MG/200 MG TID, ORAL
     Route: 048
     Dates: start: 20040901
  2. REQUIP [Concomitant]

REACTIONS (2)
  - DIARRHOEA [None]
  - WEIGHT DECREASED [None]
